FAERS Safety Report 10364838 (Version 2)
Quarter: 2014Q3

REPORT INFORMATION
  Report Type: Other
  Country: IT (occurrence: IT)
  Receive Date: 20140806
  Receipt Date: 20140806
  Transmission Date: 20150326
  Serious: Yes (Life-Threatening)
  Sender: FDA-Public Use
  Company Number: IT-MYLAN-2014S1009380

PATIENT

DRUGS (6)
  1. NOLPAZA [Concomitant]
     Active Substance: PANTOPRAZOLE SODIUM
     Indication: PRODUCT USED FOR UNKNOWN INDICATION
     Dosage: 20 MG,UNK
     Route: 048
  2. CARDIOASPIRIN [Concomitant]
     Active Substance: ASPIRIN
     Indication: PRODUCT USED FOR UNKNOWN INDICATION
     Dosage: 100 MG,UNK
     Route: 048
     Dates: start: 20130401, end: 20140416
  3. DINAPRES [Concomitant]
     Active Substance: DELAPRIL HYDROCHLORIDE\INDAPAMIDE
     Indication: ESSENTIAL HYPERTENSION
     Dosage: 30 MG,UNK
     Route: 048
     Dates: start: 20120106, end: 20140416
  4. DICLOFENAC SODIUM. [Suspect]
     Active Substance: DICLOFENAC SODIUM
     Dosage: 75 MG,TOTAL
     Route: 030
     Dates: start: 20140415, end: 20140415
  5. MUSCORIL [Suspect]
     Active Substance: THIOCOLCHICOSIDE
     Indication: NECK PAIN
     Dosage: 4 MG,TOTAL
     Route: 030
     Dates: start: 20140415, end: 20140415
  6. PANTORC [Concomitant]
     Active Substance: PANTOPRAZOLE SODIUM
     Indication: PRODUCT USED FOR UNKNOWN INDICATION
     Dosage: 20 MG, UNK

REACTIONS (3)
  - Pruritus generalised [Recovered/Resolved]
  - Presyncope [Recovered/Resolved]
  - Erythema [Recovered/Resolved]

NARRATIVE: CASE EVENT DATE: 20140415
